FAERS Safety Report 6920902-1 (Version None)
Quarter: 2010Q3

REPORT INFORMATION
  Report Type: 
  Country: None (occurrence: None)
  Receive Date: 20100812
  Receipt Date: 20100803
  Transmission Date: 20110219
  Serious: Yes (Death, Hospitalization)
  Sender: FDA-Public Use
  Company Number: JP-BAXTER-2010BH020841

PATIENT
  Age: 45 Year
  Sex: Male
  Weight: 73 kg

DRUGS (7)
  1. ADVATE [Suspect]
     Indication: FACTOR VIII DEFICIENCY
     Route: 042
     Dates: start: 20070606
  2. ADVATE [Suspect]
     Route: 042
     Dates: start: 20100715, end: 20100715
  3. ADVATE [Suspect]
     Route: 042
     Dates: start: 20100716, end: 20100716
  4. ADVATE [Suspect]
     Route: 042
     Dates: start: 20100716
  5. ZANTAC [Concomitant]
     Indication: HAEMORRHAGE PROPHYLAXIS
     Route: 042
     Dates: start: 20100715, end: 20100701
  6. ABACAVIR SULFATE W/LAMIVUDINE/ZIDOVUDINE [Concomitant]
     Indication: HIV INFECTION
     Route: 048
     Dates: start: 20050420, end: 20100714
  7. STOCRIN [Concomitant]
     Indication: HIV INFECTION
     Route: 048
     Dates: start: 20011226, end: 20100714

REACTIONS (1)
  - BRAIN STEM HAEMORRHAGE [None]
